FAERS Safety Report 11599833 (Version 1)
Quarter: 2015Q3

REPORT INFORMATION
  Report Type: Spontaneous
  Country: US (occurrence: US)
  Receive Date: 20150916
  Receipt Date: 20150916
  Transmission Date: 20151125
  Serious: No
  Sender: FDA-Public Use
  Company Number: US-ELI_LILLY_AND_COMPANY-US200609004307

PATIENT
  Age: 77 Year
  Sex: Female
  Weight: 51.25 kg

DRUGS (4)
  1. CALCIUM CARBONATE. [Concomitant]
     Active Substance: CALCIUM CARBONATE
     Dosage: 600 MG, 2/D
  2. FORTEO [Suspect]
     Active Substance: TERIPARATIDE
     Indication: OSTEOPOROSIS
     Dosage: 20 UG, DAILY (1/D)
     Dates: start: 20051206, end: 20060921
  3. REMERON /NET/ [Concomitant]
     Dosage: 15 MG, EACH EVENING
  4. CELEBREX                                /UNK/ [Concomitant]

REACTIONS (20)
  - Osteoarthritis [Unknown]
  - Blood calcium increased [Recovered/Resolved]
  - Bronchitis [Unknown]
  - Bone disorder [Unknown]
  - Spinal osteoarthritis [Unknown]
  - Lumbar spinal stenosis [Unknown]
  - Cough [Unknown]
  - Hyperkalaemia [Recovered/Resolved]
  - Carpal tunnel syndrome [Unknown]
  - Cataract [Unknown]
  - Blood alkaline phosphatase increased [Recovered/Resolved]
  - Dyslipidaemia [Recovering/Resolving]
  - Glomerular filtration rate decreased [Unknown]
  - Blood potassium increased [Recovered/Resolved]
  - Muscle spasms [Not Recovered/Not Resolved]
  - Blood urea nitrogen/creatinine ratio increased [Unknown]
  - Flank pain [Unknown]
  - Bone scan abnormal [Not Recovered/Not Resolved]
  - Bone pain [Recovered/Resolved]
  - Spondylolisthesis [Unknown]

NARRATIVE: CASE EVENT DATE: 20051216
